FAERS Safety Report 20198224 (Version 1)
Quarter: 2021Q4

REPORT INFORMATION
  Report Type: Spontaneous
  Country: US (occurrence: US)
  Receive Date: 20211217
  Receipt Date: 20211217
  Transmission Date: 20220303
  Serious: Yes (Other)
  Sender: FDA-Public Use
  Company Number: US-SA-SAC20211210000188

PATIENT
  Age: 53 Year
  Sex: Female

DRUGS (1)
  1. ZANTAC [Suspect]
     Active Substance: RANITIDINE HYDROCHLORIDE
     Dosage: UNKNOWN AT THIS TIME; FREQUENCY: OTHER
     Dates: start: 200201, end: 201201

REACTIONS (2)
  - Breast cancer stage II [Unknown]
  - Ovarian cancer stage II [Unknown]

NARRATIVE: CASE EVENT DATE: 20020101
